FAERS Safety Report 24580184 (Version 1)
Quarter: 2024Q4

REPORT INFORMATION
  Report Type: Spontaneous
  Country: US (occurrence: None)
  Receive Date: 20241104
  Receipt Date: 20241104
  Transmission Date: 20250115
  Serious: Yes (Hospitalization)
  Sender: Public
  Company Number: None

PATIENT
  Age: 35 Year
  Sex: Male
  Weight: 73.35 kg

DRUGS (15)
  1. DAPTOMYCIN [Suspect]
     Active Substance: DAPTOMYCIN
     Indication: Staphylococcal bacteraemia
     Dosage: FREQUENCY : DAILY;?
     Route: 042
     Dates: start: 20241004, end: 20241101
  2. VANCOMYCIN HYDROCHLORIDE [Concomitant]
     Active Substance: VANCOMYCIN HYDROCHLORIDE
     Dates: start: 20240925, end: 20241004
  3. CEFEPIME [Concomitant]
     Active Substance: CEFEPIME HYDROCHLORIDE
     Dates: start: 20241005, end: 20241008
  4. Cefiderocol IV [Concomitant]
     Dates: start: 20241008, end: 20241009
  5. Ciprofloxacin PO [Concomitant]
     Dates: start: 20241009, end: 20241020
  6. APIXABAN [Concomitant]
     Active Substance: APIXABAN
     Dates: start: 20241011, end: 20241104
  7. ASCORBIC ACID [Concomitant]
     Active Substance: ASCORBIC ACID
     Dates: start: 20240930, end: 20241104
  8. CHLORHEXIDINE GLUCONATE [Concomitant]
     Active Substance: CHLORHEXIDINE GLUCONATE
     Dates: start: 20241002, end: 20241104
  9. CLONIDINE [Concomitant]
     Active Substance: CLONIDINE
     Dates: start: 20240925, end: 20241104
  10. FERROUS SULFATE [Concomitant]
     Active Substance: FERROUS SULFATE
     Dates: start: 20241031, end: 20241104
  11. GABAPENTIN [Concomitant]
     Active Substance: GABAPENTIN
     Dates: start: 20240929, end: 20241104
  12. HYDROMORPHONE [Concomitant]
     Active Substance: HYDROMORPHONE
     Dates: start: 20241030, end: 20241104
  13. METHADONE [Concomitant]
     Active Substance: METHADONE HYDROCHLORIDE
     Dates: start: 20240925, end: 20241104
  14. NAPROXEN [Concomitant]
     Active Substance: NAPROXEN
     Dates: start: 20241020, end: 20241104
  15. QUETIAPINE [Concomitant]
     Active Substance: QUETIAPINE
     Dates: start: 20241011, end: 20241104

REACTIONS (2)
  - Liver injury [None]
  - Therapy change [None]

NARRATIVE: CASE EVENT DATE: 20241104
